FAERS Safety Report 7260381-0 (Version None)
Quarter: 2011Q1

REPORT INFORMATION
  Report Type: 
  Country: None (occurrence: None)
  Receive Date: 20110130
  Receipt Date: 20101020
  Transmission Date: 20110831
  Serious: No
  Sender: FDA-Public Use
  Company Number: US-ABBOTT-10P-163-0679687-00

PATIENT
  Age: 11 Year
  Sex: Male

DRUGS (5)
  1. ELAVIL [Concomitant]
     Indication: DEPRESSION
  2. OXYCODONE [Concomitant]
     Indication: PAIN
     Dosage: EVERY 6 HOURS AS NEEDED
  3. HUMIRA [Suspect]
     Indication: CROHN'S DISEASE
     Dates: start: 20100729
  4. ZOFRAN [Concomitant]
     Indication: NAUSEA
     Dosage: EVERY 6 HOURS AS NEEDED
  5. ELAVIL [Concomitant]
     Indication: NEURALGIA

REACTIONS (4)
  - SNEEZING [None]
  - PYREXIA [None]
  - RHINORRHOEA [None]
  - EAR PAIN [None]
